FAERS Safety Report 24142732 (Version 1)
Quarter: 2024Q3

REPORT INFORMATION
  Report Type: Spontaneous
  Country: NZ (occurrence: NZ)
  Receive Date: 20240726
  Receipt Date: 20240726
  Transmission Date: 20241016
  Serious: Yes (Hospitalization)
  Sender: JOHNSON AND JOHNSON
  Company Number: NZ-JNJFOC-20240772212

PATIENT
  Age: 31 Year
  Sex: Female
  Weight: 55 kg

DRUGS (10)
  1. REMICADE [Suspect]
     Active Substance: INFLIXIMAB
     Indication: Crohn^s disease
     Route: 041
     Dates: start: 202306, end: 2023
  2. REMICADE [Suspect]
     Active Substance: INFLIXIMAB
     Route: 041
  3. HYDROCORTISONE [Concomitant]
     Active Substance: HYDROCORTISONE\HYDROCORTISONE ACETATE
     Route: 042
  4. FERINJECT [Concomitant]
     Active Substance: FERRIC CARBOXYMALTOSE
     Route: 042
  5. MERCAPTOPURINE [Concomitant]
     Active Substance: MERCAPTOPURINE
     Route: 048
     Dates: end: 202307
  6. UNSPECIFIED INGREDIENT [Concomitant]
     Active Substance: UNSPECIFIED INGREDIENT
     Route: 042
  7. COTRIMOXAZOLE [Concomitant]
     Active Substance: SULFAMETHOXAZOLE\TRIMETHOPRIM
     Route: 048
  8. ENOXAPARIN [Concomitant]
     Active Substance: ENOXAPARIN
     Route: 058
  9. THIOGUANINE ANHYDROUS [Concomitant]
     Active Substance: THIOGUANINE ANHYDROUS
     Dates: start: 202307, end: 202307
  10. METHOTREXATE [Concomitant]
     Active Substance: METHOTREXATE
     Dates: start: 202308

REACTIONS (11)
  - Pancreatitis [Recovering/Resolving]
  - Deep vein thrombosis [Unknown]
  - Colitis [Unknown]
  - Anaemia [Unknown]
  - Crohn^s disease [Recovering/Resolving]
  - Hypotension [Unknown]
  - Tachycardia [Unknown]
  - Eating disorder [Unknown]
  - Thinking abnormal [Unknown]
  - Therapeutic product effect incomplete [Unknown]
  - Off label use [Unknown]

NARRATIVE: CASE EVENT DATE: 20230101
